FAERS Safety Report 19110986 (Version 1)
Quarter: 2021Q2

REPORT INFORMATION
  Report Type: Spontaneous
  Country: JP (occurrence: JP)
  Receive Date: 20210409
  Receipt Date: 20210409
  Transmission Date: 20210717
  Serious: Yes (Death, Other)
  Sender: FDA-Public Use
  Company Number: JP-PRA-000093

PATIENT
  Age: 89 Year

DRUGS (8)
  1. METHYLPREDNISOLONE. [Suspect]
     Active Substance: METHYLPREDNISOLONE
     Indication: DIFFUSE ALVEOLAR DAMAGE
     Route: 065
  2. METHYLPREDNISOLONE. [Suspect]
     Active Substance: METHYLPREDNISOLONE
     Indication: RHEUMATOID ARTHRITIS
     Route: 065
  3. SIVELESTAT [Concomitant]
     Active Substance: SIVELESTAT
     Indication: RHEUMATOID ARTHRITIS
     Route: 065
  4. LEVOFLOXACIN. [Suspect]
     Active Substance: LEVOFLOXACIN
     Indication: DIFFUSE ALVEOLAR DAMAGE
     Route: 065
  5. LEVOFLOXACIN. [Suspect]
     Active Substance: LEVOFLOXACIN
     Indication: RHEUMATOID ARTHRITIS
     Route: 065
  6. IMMUNOGLOBULIN HUMAN NORMAL [Concomitant]
     Active Substance: HUMAN IMMUNOGLOBULIN G
     Indication: DIFFUSE ALVEOLAR DAMAGE
     Route: 042
  7. SIVELESTAT [Concomitant]
     Active Substance: SIVELESTAT
     Indication: DIFFUSE ALVEOLAR DAMAGE
     Route: 065
  8. IMMUNOGLOBULIN HUMAN NORMAL [Concomitant]
     Active Substance: HUMAN IMMUNOGLOBULIN G
     Indication: RHEUMATOID ARTHRITIS
     Route: 042

REACTIONS (7)
  - Haemoptysis [Unknown]
  - Disease progression [Fatal]
  - Respiratory failure [Fatal]
  - Drug ineffective [Unknown]
  - Anaemia [Unknown]
  - Diffuse alveolar damage [Fatal]
  - Product use in unapproved indication [Unknown]
